FAERS Safety Report 8168093 (Version 4)
Quarter: 2014Q2

REPORT INFORMATION
  Report Type: Spontaneous
  Country: US (occurrence: US)
  Receive Date: 20111004
  Receipt Date: 20140429
  Transmission Date: 20141212
  Serious: Yes (Hospitalization)
  Sender: FDA-Public Use
  Company Number: US-BAYER-2011-091303

PATIENT
  Age: 38 Year
  Sex: Female
  Weight: 83.45 kg

DRUGS (3)
  1. YAZ [Suspect]
     Dosage: UNK
     Dates: start: 2005, end: 2006
  2. ALEVE [Concomitant]
     Dosage: UNK
     Dates: start: 2004, end: 2008
  3. ORTHO TRI-CYCLEN [Concomitant]

REACTIONS (3)
  - Pancreatitis [Recovering/Resolving]
  - Cholecystitis acute [Recovering/Resolving]
  - Gastrointestinal disorder [None]
